FAERS Safety Report 24466058 (Version 1)
Quarter: 2024Q4

REPORT INFORMATION
  Report Type: Report from Study
  Country: US (occurrence: US)
  Receive Date: 20241018
  Receipt Date: 20241018
  Transmission Date: 20250115
  Serious: No
  Sender: ROCHE
  Company Number: US-ROCHE-3525507

PATIENT
  Age: 88 Year
  Sex: Male

DRUGS (13)
  1. XOLAIR [Suspect]
     Active Substance: OMALIZUMAB
     Indication: Asthma
     Route: 058
     Dates: start: 20220301, end: 20231226
  2. XOLAIR [Suspect]
     Active Substance: OMALIZUMAB
  3. SPIRIVA [Concomitant]
     Active Substance: TIOTROPIUM BROMIDE MONOHYDRATE
  4. SYMBICORT [Concomitant]
     Active Substance: BUDESONIDE\FORMOTEROL FUMARATE DIHYDRATE
  5. ASPIRIN [Concomitant]
     Active Substance: ASPIRIN
  6. EPIPEN [Concomitant]
     Active Substance: EPINEPHRINE
  7. FISH OIL [Concomitant]
     Active Substance: FISH OIL
  8. FOLIC ACID [Concomitant]
     Active Substance: FOLIC ACID
  9. IPRATROPIUM [Concomitant]
     Active Substance: IPRATROPIUM
  10. MUCINEX [Concomitant]
     Active Substance: GUAIFENESIN
  11. VITAMINS [Concomitant]
     Active Substance: VITAMINS
  12. PREDNISONE [Concomitant]
     Active Substance: PREDNISONE
  13. PROVENTIL [Concomitant]
     Active Substance: ALBUTEROL

REACTIONS (2)
  - Drug ineffective [Unknown]
  - No adverse event [Unknown]
